FAERS Safety Report 25089825 (Version 1)
Quarter: 2025Q1

REPORT INFORMATION
  Report Type: Spontaneous
  Country: US (occurrence: None)
  Receive Date: 20250318
  Receipt Date: 20250318
  Transmission Date: 20250408
  Serious: No
  Sender: INCYTE
  Company Number: US-INCYTE CORPORATION-2025IN002765

PATIENT
  Age: 78 Year

DRUGS (2)
  1. JAKAFI [Suspect]
     Active Substance: RUXOLITINIB
     Indication: Myeloproliferative neoplasm
  2. JAKAFI [Suspect]
     Active Substance: RUXOLITINIB

REACTIONS (3)
  - Dizziness [Recovering/Resolving]
  - Balance disorder [Recovering/Resolving]
  - Off label use [Unknown]
